FAERS Safety Report 9266781 (Version 2)
Quarter: 2013Q3

REPORT INFORMATION
  Report Type: Spontaneous
  Country: US (occurrence: US)
  Receive Date: 20130502
  Receipt Date: 20130916
  Transmission Date: 20140515
  Serious: Yes (Hospitalization)
  Sender: FDA-Public Use
  Company Number: US-BAYER-2013-052695

PATIENT
  Age: 24 Year
  Sex: Female
  Weight: 76.64 kg

DRUGS (12)
  1. YAZ [Suspect]
     Indication: ACNE
  2. YAZ [Suspect]
     Indication: CONTRACEPTION
  3. GIANVI [Suspect]
  4. FLUTICASONE [Concomitant]
     Indication: ASTHMA
     Dosage: HFA, 110, MCG/INH, 1 PUFF,2 TIMES A DAY
  5. MONTELUKAST [Concomitant]
     Indication: ASTHMA
     Dosage: 10 MG, QD
     Route: 048
  6. MONTELUKAST [Concomitant]
     Indication: MULTIPLE ALLERGIES
  7. CETIRIZINE [Concomitant]
     Indication: MULTIPLE ALLERGIES
     Dosage: 10 MG, QD
     Route: 048
  8. PROVENTIL [Concomitant]
     Indication: ASTHMA
     Dosage: 1 PUFF(S), PRN
  9. METHYLPREDNISOLONE [Concomitant]
     Dosage: UNK
     Route: 048
     Dates: start: 20120925
  10. AZITHROMYCIN [Concomitant]
     Dosage: 250 MG, UNK
     Route: 048
     Dates: start: 20120925
  11. CIPROFLOXACIN [Concomitant]
     Dosage: 500 MG, UNK
     Route: 048
     Dates: start: 20121018
  12. CLARITHROMYCIN [Concomitant]
     Dosage: 500 MG, UNK
     Route: 048
     Dates: start: 20121025

REACTIONS (3)
  - Deep vein thrombosis [None]
  - Pulmonary embolism [None]
  - Pelvic venous thrombosis [None]
